FAERS Safety Report 6444848-0 (Version None)
Quarter: 2009Q4

REPORT INFORMATION
  Report Type: 
  Country: None (occurrence: None)
  Receive Date: 20091118
  Receipt Date: 20091111
  Transmission Date: 20100525
  Serious: Yes (Death, Hospitalization)
  Sender: FDA-Public Use
  Company Number: PHHY2009MX42495

PATIENT
  Age: 52 Year
  Sex: Female

DRUGS (1)
  1. DIOVAN HCT [Suspect]
     Indication: HYPERTENSION
     Dosage: 1 TABLET (160/12.5 MG)/DAY
     Route: 048
     Dates: start: 20060101, end: 20090912

REACTIONS (6)
  - ALTERED STATE OF CONSCIOUSNESS [None]
  - CARDIO-RESPIRATORY ARREST [None]
  - CONDITION AGGRAVATED [None]
  - HYPERTENSION [None]
  - RENAL FAILURE [None]
  - SLEEP DISORDER [None]
